FAERS Safety Report 16378819 (Version 1)
Quarter: 2019Q2

REPORT INFORMATION
  Report Type: Spontaneous
  Country: US (occurrence: US)
  Receive Date: 20190417
  Receipt Date: 20190417
  Transmission Date: 20190711
  Serious: Yes (Life-Threatening)
  Sender: FDA-Public Use
  Company Number: None

PATIENT
  Age: 30 Year
  Sex: Female

DRUGS (1)
  1. XYLOCAINE [Suspect]
     Active Substance: LIDOCAINE HYDROCHLORIDE
     Indication: LOCAL ANAESTHESIA

REACTIONS (5)
  - Dizziness [None]
  - Feeling abnormal [None]
  - Malaise [None]
  - Arrhythmia [None]
  - Cardiac disorder [None]

NARRATIVE: CASE EVENT DATE: 20190416
